FAERS Safety Report 8023714-3 (Version None)
Quarter: 2012Q1

REPORT INFORMATION
  Report Type: 
  Country: None (occurrence: None)
  Receive Date: 20120105
  Receipt Date: 20111228
  Transmission Date: 20120608
  Serious: Yes (Other)
  Sender: FDA-Public Use
  Company Number: US-BAYER-2011-098622

PATIENT
  Age: 22 Year
  Sex: Female
  Weight: 92.971 kg

DRUGS (4)
  1. YAZ [Suspect]
     Dosage: UNK
     Dates: start: 20070901, end: 20071201
  2. DEPO-PROVERA [Concomitant]
  3. NAPROXEN [Concomitant]
     Dosage: 500 MG, UNK
  4. YAZ [Suspect]
     Dosage: UNK
     Dates: start: 20090701

REACTIONS (3)
  - GALLBLADDER DISORDER [None]
  - PAIN [None]
  - EMOTIONAL DISTRESS [None]
